FAERS Safety Report 6738835-2 (Version None)
Quarter: 2010Q2

REPORT INFORMATION
  Report Type: 
  Country: None (occurrence: None)
  Receive Date: 20100520
  Receipt Date: 20100511
  Transmission Date: 20101027
  Serious: Yes (Hospitalization)
  Sender: FDA-Public Use
  Company Number: 2010SP026429

PATIENT
  Age: 50 Year
  Sex: Female

DRUGS (3)
  1. REBETOL [Suspect]
     Indication: HEPATITIS C
     Dosage: 600 MG;QD;PO
     Route: 048
     Dates: start: 20100427, end: 20100507
  2. INTERFERON [Suspect]
     Indication: HEPATITIS C
     Dosage: 6 MIU; IV
     Route: 042
     Dates: start: 20100427, end: 20100507
  3. LIVALO [Concomitant]

REACTIONS (4)
  - INTERSTITIAL LUNG DISEASE [None]
  - PYREXIA [None]
  - RALES [None]
  - WHITE BLOOD CELL COUNT INCREASED [None]
